FAERS Safety Report 22243029 (Version 2)
Quarter: 2023Q2

REPORT INFORMATION
  Report Type: Spontaneous
  Country: FR (occurrence: FR)
  Receive Date: 20230424
  Receipt Date: 20230503
  Transmission Date: 20230722
  Serious: Yes (Death)
  Sender: FDA-Public Use
  Company Number: None

PATIENT
  Age: 31 Year
  Sex: Female

DRUGS (2)
  1. CIPROFLOXACIN [Suspect]
     Active Substance: CIPROFLOXACIN
     Indication: Pyelonephritis
     Dosage: UNK (NR) (500MG 2X/JOUR)
     Route: 048
     Dates: start: 20230401, end: 20230402
  2. BACTRIM [Suspect]
     Active Substance: SULFAMETHOXAZOLE\TRIMETHOPRIM
     Indication: Urinary tract infection
     Dosage: UNK (POSOLOGIE INCONNUE)
     Route: 048
     Dates: start: 20230316, end: 20230402

REACTIONS (2)
  - Intracranial pressure increased [Fatal]
  - Rash maculo-papular [Fatal]

NARRATIVE: CASE EVENT DATE: 20230401
